FAERS Safety Report 7023101-0 (Version None)
Quarter: 2010Q3

REPORT INFORMATION
  Report Type: 
  Country: None (occurrence: None)
  Receive Date: 20100930
  Receipt Date: 20100930
  Transmission Date: 20110219
  Serious: Yes (Other)
  Sender: FDA-Public Use
  Company Number: JP-BRISTOL-MYERS SQUIBB COMPANY-15294234

PATIENT
  Age: 32 Year
  Sex: Male

DRUGS (3)
  1. BLEOMYCIN SULFATE [Suspect]
     Indication: SEMINOMA
  2. CISPLATIN [Suspect]
     Indication: SEMINOMA
  3. ETOPOSIDE [Suspect]
     Indication: SEMINOMA

REACTIONS (1)
  - SARCOIDOSIS [None]
